FAERS Safety Report 14372978 (Version 4)
Quarter: 2019Q3

REPORT INFORMATION
  Report Type: Report from Study
  Country: US (occurrence: US)
  Receive Date: 20180110
  Receipt Date: 20190712
  Transmission Date: 20191004
  Serious: Yes (Hospitalization)
  Sender: FDA-Public Use
  Company Number: US-ACTELION-A-US2018-165399

PATIENT
  Age: 50 Year
  Sex: Female

DRUGS (15)
  1. REMODULIN [Concomitant]
     Active Substance: TREPROSTINIL
  2. TREPROSTINIL. [Concomitant]
     Active Substance: TREPROSTINIL
  3. OXYGEN. [Concomitant]
     Active Substance: OXYGEN
  4. NORCO [Concomitant]
     Active Substance: ACETAMINOPHEN\HYDROCODONE BITARTRATE
  5. TYLENOL WITH CODEINE [Concomitant]
     Active Substance: ACETAMINOPHEN\CODEINE PHOSPHATE
  6. LORAZEPAM. [Concomitant]
     Active Substance: LORAZEPAM
  7. POTASSIUM CHLORIDE. [Concomitant]
     Active Substance: POTASSIUM CHLORIDE
  8. ONDANSETRON [Concomitant]
     Active Substance: ONDANSETRON
  9. OMEPRAZOLE. [Concomitant]
     Active Substance: OMEPRAZOLE
  10. SILDENAFIL. [Concomitant]
     Active Substance: SILDENAFIL
  11. DEPO-PROVERA [Concomitant]
     Active Substance: MEDROXYPROGESTERONE ACETATE
  12. TRACLEER [Suspect]
     Active Substance: BOSENTAN
     Indication: PULMONARY ARTERIAL HYPERTENSION
     Dosage: 125 MG, BID
     Route: 048
     Dates: start: 20141204
  13. METOLAZONE. [Concomitant]
     Active Substance: METOLAZONE
  14. ALBUTEROL. [Concomitant]
     Active Substance: ALBUTEROL
  15. COMBIVENT [Concomitant]
     Active Substance: ALBUTEROL SULFATE\IPRATROPIUM BROMIDE

REACTIONS (11)
  - Right ventricular failure [Recovering/Resolving]
  - Nausea [Unknown]
  - Upper respiratory tract infection [Unknown]
  - Cardiac failure acute [Unknown]
  - Oxygen therapy [Unknown]
  - Weight increased [Unknown]
  - Abdominal distension [Unknown]
  - Hypokalaemia [Unknown]
  - Syncope [Unknown]
  - Viral infection [Unknown]
  - Epigastric discomfort [Unknown]

NARRATIVE: CASE EVENT DATE: 2017
